FAERS Safety Report 19950530 (Version 1)
Quarter: 2021Q4

REPORT INFORMATION
  Report Type: Spontaneous
  Country: IN (occurrence: IN)
  Receive Date: 20211013
  Receipt Date: 20211013
  Transmission Date: 20220303
  Serious: Yes (Hospitalization, Other)
  Sender: FDA-Public Use
  Company Number: IN-AMGEN-INDSP2021154350

PATIENT
  Age: 47 Year
  Sex: Male

DRUGS (3)
  1. PROLIA [Suspect]
     Active Substance: DENOSUMAB
     Indication: Hypercalcaemia
     Dosage: UNK
     Route: 065
  2. CALCITRIOL [Concomitant]
     Active Substance: CALCITRIOL
  3. CALCIUM [Concomitant]
     Active Substance: CALCIUM

REACTIONS (3)
  - Multiple endocrine neoplasia Type 1 [Unknown]
  - Hypocalcaemia [Unknown]
  - Off label use [Unknown]
